FAERS Safety Report 18564369 (Version 1)
Quarter: 2020Q4

REPORT INFORMATION
  Report Type: Spontaneous
  Country: US (occurrence: US)
  Receive Date: 20201201
  Receipt Date: 20201201
  Transmission Date: 20210114
  Serious: Yes (Hospitalization)
  Sender: FDA-Public Use
  Company Number: US-TEVA-2020-US-1853082

PATIENT
  Age: 72 Year
  Sex: Male
  Weight: 108.86 kg

DRUGS (5)
  1. ALBUTEROL SULFATE HFA [Suspect]
     Active Substance: ALBUTEROL SULFATE
     Route: 065
     Dates: start: 202011
  2. SPIRIVA [Concomitant]
     Active Substance: TIOTROPIUM BROMIDE MONOHYDRATE
  3. ATROVENT [Concomitant]
     Active Substance: IPRATROPIUM BROMIDE
  4. ALBUTEROL SULFATE HFA [Suspect]
     Active Substance: ALBUTEROL SULFATE
     Indication: CHRONIC OBSTRUCTIVE PULMONARY DISEASE
     Route: 065
  5. SYMBICORT [Concomitant]
     Active Substance: BUDESONIDE\FORMOTEROL FUMARATE DIHYDRATE

REACTIONS (5)
  - Weight decreased [Unknown]
  - Drug ineffective [Unknown]
  - Expired product administered [Unknown]
  - Pneumonia [Unknown]
  - Pneumothorax [Unknown]

NARRATIVE: CASE EVENT DATE: 2018
